FAERS Safety Report 7288510-3 (Version None)
Quarter: 2011Q1

REPORT INFORMATION
  Report Type: 
  Country: None (occurrence: None)
  Receive Date: 20110211
  Receipt Date: 20110127
  Transmission Date: 20110831
  Serious: Yes (Hospitalization)
  Sender: FDA-Public Use
  Company Number: US-ROCHE-758415

PATIENT
  Sex: Female
  Weight: 69.9 kg

DRUGS (15)
  1. ASPIRIN [Concomitant]
     Indication: HYPERTENSION
     Route: 048
     Dates: start: 20100209, end: 20110201
  2. PRILOSEC [Concomitant]
     Route: 048
     Dates: start: 19950701
  3. FLU IMMUNIZATION [Concomitant]
     Dosage: X 1
     Route: 058
  4. CIPRO [Concomitant]
     Dosage: INDICATION: ANTIBIOTIC
     Route: 048
  5. AQUAPHOR [Concomitant]
     Route: 061
  6. BEVACIZUMAB [Suspect]
     Route: 042
     Dates: start: 20100915
  7. MOBIC [Concomitant]
     Indication: ARTHRITIS
     Route: 048
     Dates: start: 20091201
  8. CRESTOR [Concomitant]
     Route: 048
     Dates: start: 20070901
  9. VALIUM [Concomitant]
     Indication: ANXIETY
     Route: 048
     Dates: start: 20100419
  10. OXYCODONE HCL [Concomitant]
     Indication: PAIN
     Route: 048
  11. EMLA [Concomitant]
     Route: 061
  12. DECADRON [Concomitant]
     Route: 048
     Dates: start: 20100914
  13. VIT B12 [Concomitant]
     Route: 058
  14. M.V.I. [Concomitant]
     Route: 048
     Dates: start: 19900401
  15. SYSTANE ULTRA [Concomitant]
     Indication: DRY EYE
     Dosage: FREQUENCY: PRN
     Route: 065

REACTIONS (2)
  - APHASIA [None]
  - CONFUSIONAL STATE [None]
